FAERS Safety Report 6592362-4 (Version None)
Quarter: 2010Q1

REPORT INFORMATION
  Report Type: 
  Country: None (occurrence: None)
  Receive Date: 20100221
  Receipt Date: 20091006
  Transmission Date: 20100710
  Serious: No
  Sender: FDA-Public Use
  Company Number: US-ALLERGAN-0913454US

PATIENT
  Sex: Female

DRUGS (14)
  1. BOTOX COSMETIC [Suspect]
     Indication: SKIN WRINKLING
     Dosage: UNK
     Route: 030
  2. JUVEDERM ULTRA PLUS [Suspect]
     Indication: SKIN WRINKLING
  3. ESTROGEN [Concomitant]
  4. TESTOSTERONE [Concomitant]
  5. PROGESTERONE [Concomitant]
  6. DHEA [Concomitant]
  7. ZYBAN [Concomitant]
  8. THIODOX [Concomitant]
  9. KRILL OIL [Concomitant]
  10. SAT [Suspect]
  11. INDO-3 [Concomitant]
  12. VITAMIN D [Concomitant]
  13. MAGNESIUM [Concomitant]
  14. THYROID TAB [Concomitant]

REACTIONS (4)
  - CHEILITIS [None]
  - LIP SWELLING [None]
  - ORAL PRURITUS [None]
  - PARAESTHESIA ORAL [None]
